FAERS Safety Report 5376606-2 (Version None)
Quarter: 2007Q2

REPORT INFORMATION
  Report Type: 
  Country: None (occurrence: None)
  Receive Date: 20070628
  Receipt Date: 20070612
  Transmission Date: 20071010
  Serious: Yes (Death, Life-Threatening, Hospitalization)
  Sender: FDA-Public Use
  Company Number: 2007US001346

PATIENT
  Age: 64 Year
  Sex: Male

DRUGS (15)
  1. AMBISOME [Suspect]
     Indication: FUNGAL INFECTION
     Dosage: 150 MG, UID/QD, IV DRIP
     Route: 041
     Dates: start: 20070503, end: 20070515
  2. CIPROFLAXACIN [Suspect]
     Indication: DRUG USE FOR UNKNOWN INDICATION
     Dosage: 600 MG, UID/QD, IV DRIP
     Route: 041
     Dates: start: 20070427, end: 20070508
  3. TARGOCID [Suspect]
     Indication: DRUG USE FOR UNKNOWN INDICATION
     Dosage: 400 MG, UID/QD, IV DRIP
     Route: 041
     Dates: start: 20070427, end: 20070510
  4. POTASSIUM CHLORIDE [Suspect]
     Indication: DRUG USE FOR UNKNOWN INDICATION
     Dosage: SEE IMAGE
     Route: 041
     Dates: start: 20070502, end: 20070502
  5. POTASSIUM CHLORIDE [Suspect]
     Indication: DRUG USE FOR UNKNOWN INDICATION
     Dosage: SEE IMAGE
     Route: 041
     Dates: start: 20070503, end: 20070505
  6. POTASSIUM CHLORIDE [Suspect]
     Indication: DRUG USE FOR UNKNOWN INDICATION
     Dosage: SEE IMAGE
     Route: 041
     Dates: start: 20070506, end: 20070513
  7. MAXIPIME [Suspect]
     Indication: DRUG USE FOR UNKNOWN INDICATION
     Dosage: 4 G, UID/QD, IV NOS
     Route: 042
     Dates: start: 20070509, end: 20070515
  8. ZYVOX [Suspect]
     Indication: DRUG USE FOR UNKNOWN INDICATION
     Dosage: UID/QD, IV DRIP
     Route: 041
     Dates: start: 20070511, end: 20070515
  9. VFEND [Concomitant]
  10. PLATELETS [Concomitant]
  11. RED BLOOD CELLS [Concomitant]
  12. NEUTROGIN (LENOGRASTIM) [Concomitant]
  13. PHYSIO (GLUCOSE, SODIUM ACETATE, CALCIUM GLUCONATE, SODIUM CHLORIDE, P [Concomitant]
  14. FULCALIQ [Concomitant]
  15. RITUXAN [Concomitant]

REACTIONS (13)
  - ALANINE AMINOTRANSFERASE INCREASED [None]
  - ASPARTATE AMINOTRANSFERASE INCREASED [None]
  - BLOOD BILIRUBIN INCREASED [None]
  - BLOOD CREATININE INCREASED [None]
  - BLOOD POTASSIUM INCREASED [None]
  - BLOOD UREA INCREASED [None]
  - CONDITION AGGRAVATED [None]
  - CONVULSION [None]
  - LEUKAEMIA [None]
  - LIVER DISORDER [None]
  - MULTI-ORGAN FAILURE [None]
  - PLATELET COUNT DECREASED [None]
  - WHITE BLOOD CELL COUNT DECREASED [None]
